FAERS Safety Report 9324468 (Version 1)
Quarter: 2013Q2

REPORT INFORMATION
  Report Type: Spontaneous
  Country: US (occurrence: US)
  Receive Date: 20130603
  Receipt Date: 20130603
  Transmission Date: 20140414
  Serious: No
  Sender: FDA-Public Use
  Company Number: US-ASTRAZENECA-2010SE44918

PATIENT
  Age: 75 Year
  Sex: Female
  Weight: 64 kg

DRUGS (13)
  1. CRESTOR [Suspect]
     Indication: BLOOD CHOLESTEROL INCREASED
     Route: 048
     Dates: start: 20100920
  2. CRESTOR [Suspect]
     Indication: BLOOD CHOLESTEROL INCREASED
     Route: 048
  3. PATANASE [Concomitant]
     Indication: HYPERSENSITIVITY
  4. ARMOUR THYROID [Concomitant]
     Indication: THYROID DISORDER
  5. CLARITIN [Concomitant]
     Indication: HYPERSENSITIVITY
  6. FAMOTIDINE [Concomitant]
     Indication: GASTROOESOPHAGEAL REFLUX DISEASE
  7. PARVEDOL [Concomitant]
     Indication: BLOOD PRESSURE ABNORMAL
  8. CARVIDEL [Concomitant]
     Indication: HYPERTENSION
  9. VITAMINS [Concomitant]
  10. FISH OIL [Concomitant]
  11. MVI [Concomitant]
  12. COQ10 [Concomitant]
  13. GENERIC PEPCID [Concomitant]

REACTIONS (3)
  - Back pain [Unknown]
  - Asthenia [Not Recovered/Not Resolved]
  - Fatigue [Not Recovered/Not Resolved]
